FAERS Safety Report 18427210 (Version 1)
Quarter: 2020Q4

REPORT INFORMATION
  Report Type: Spontaneous
  Country: US (occurrence: US)
  Receive Date: 20201026
  Receipt Date: 20201026
  Transmission Date: 20210114
  Serious: Yes (Other)
  Sender: FDA-Public Use
  Company Number: None

PATIENT
  Age: 38 Year
  Sex: Male
  Weight: 69.75 kg

DRUGS (6)
  1. TRAMADOL IR 50MG [Suspect]
     Active Substance: TRAMADOL
     Route: 048
  2. VEGA WHEY PROTEIN [Concomitant]
  3. IODINE. [Concomitant]
     Active Substance: IODINE
  4. TRAMADOL ER 100MG [Suspect]
     Active Substance: TRAMADOL HYDROCHLORIDE
     Indication: PAIN
     Route: 048
     Dates: start: 20200404, end: 20200704
  5. COMPOUNDED TESTOSTERONE CREAM [Concomitant]
     Active Substance: TESTOSTERONE
  6. LORAZEPAM. [Concomitant]
     Active Substance: LORAZEPAM

REACTIONS (5)
  - Insomnia [None]
  - Hallucination, auditory [None]
  - Blood thyroid stimulating hormone abnormal [None]
  - Hyperacusis [None]
  - Anxiety [None]

NARRATIVE: CASE EVENT DATE: 20200404
